FAERS Safety Report 23106559 (Version 1)
Quarter: 2023Q4

REPORT INFORMATION
  Report Type: Spontaneous
  Country: FR (occurrence: None)
  Receive Date: 20231026
  Receipt Date: 20231026
  Transmission Date: 20240109
  Serious: Yes (Hospitalization)
  Sender: FDA-Public Use
  Company Number: 2023A238150

PATIENT
  Age: 69 Year
  Sex: Male
  Weight: 79 kg

DRUGS (1)
  1. IMFINZI [Suspect]
     Active Substance: DURVALUMAB
     Indication: Cholangiocarcinoma
     Dosage: 1500MG TOUS LES 28J1500.0MG EVERY CYCLE
     Route: 040
     Dates: start: 20230803

REACTIONS (7)
  - Fibrin degradation products [Recovered/Resolved]
  - Hyperferritinaemia [Recovered/Resolved]
  - Thrombocytopenia [Recovered/Resolved]
  - Inflammation [Recovered/Resolved]
  - Splenomegaly [Recovered/Resolved]
  - Hepatic cytolysis [Recovered/Resolved]
  - Pyrexia [Recovered/Resolved]

NARRATIVE: CASE EVENT DATE: 20230807
